FAERS Safety Report 4291449-9 (Version None)
Quarter: 2004Q1

REPORT INFORMATION
  Report Type: 
  Country: None (occurrence: None)
  Receive Date: 20040210
  Receipt Date: 20040210
  Transmission Date: 20041129
  Serious: Yes (Hospitalization)
  Sender: FDA-Public Use
  Company Number: None

PATIENT
  Age: 48 Year
  Sex: Male

DRUGS (4)
  1. CAMPATH [Suspect]
     Indication: MULTIPLE SCLEROSIS
     Dosage: 24 MG QD IV
     Route: 042
     Dates: start: 20040202, end: 20040206
  2. CLARITIN [Concomitant]
  3. BENADRYL [Concomitant]
  4. MOTRIN [Concomitant]

REACTIONS (4)
  - DEEP VEIN THROMBOSIS [None]
  - LETHARGY [None]
  - LUNG INFILTRATION [None]
  - PYREXIA [None]
